FAERS Safety Report 9470850 (Version 1)
Quarter: 2013Q3

REPORT INFORMATION
  Report Type: Report from Study
  Country: AR (occurrence: AR)
  Receive Date: 20130822
  Receipt Date: 20130822
  Transmission Date: 20140515
  Serious: Yes (Hospitalization)
  Sender: FDA-Public Use
  Company Number: PHHY2013AR091032

PATIENT
  Sex: Male

DRUGS (1)
  1. EXELON PATCH [Suspect]
     Indication: DEMENTIA ALZHEIMER^S TYPE
     Dosage: 4.6 MG (PATCH 5 CM2). DAILY
     Route: 062
     Dates: start: 201302

REACTIONS (3)
  - Pancreatic neoplasm [Recovering/Resolving]
  - Back pain [Recovering/Resolving]
  - Yellow skin [Recovering/Resolving]
